FAERS Safety Report 5189504-4 (Version None)
Quarter: 2006Q4

REPORT INFORMATION
  Report Type: 
  Country: None (occurrence: None)
  Receive Date: 20061221
  Receipt Date: 20050603
  Transmission Date: 20070319
  Serious: No
  Sender: FDA-Public Use
  Company Number: US-AMGEN-US137088

PATIENT
  Sex: Male

DRUGS (2)
  1. ENBREL [Suspect]
     Indication: PSORIASIS
     Route: 065
     Dates: start: 20040401, end: 20050422
  2. KENALOG [Concomitant]
     Route: 061

REACTIONS (2)
  - INSOMNIA [None]
  - IRRITABILITY [None]
